FAERS Safety Report 8503864-5 (Version None)
Quarter: 2012Q3

REPORT INFORMATION
  Report Type: 
  Country: None (occurrence: None)
  Receive Date: 20120711
  Receipt Date: 20111026
  Transmission Date: 20120928
  Serious: No
  Sender: FDA-Public Use
  Company Number: US-BRISTOL-MYERS SQUIBB COMPANY-15233380

PATIENT
  Age: 34 Year
  Sex: Female
  Weight: 84 kg

DRUGS (3)
  1. DEPAKOTE [Concomitant]
  2. KLONOPIN [Suspect]
  3. ABILIFY [Suspect]
     Indication: BIPOLAR DISORDER
     Dosage: DOSAGE:2MG TWICE A DAY AND 4MG PRN.
     Dates: start: 20060101

REACTIONS (2)
  - CIRCUMSTANCE OR INFORMATION CAPABLE OF LEADING TO MEDICATION ERROR [None]
  - MENSTRUAL DISORDER [None]
